FAERS Safety Report 8230455-6 (Version None)
Quarter: 2012Q1

REPORT INFORMATION
  Report Type: 
  Country: None (occurrence: None)
  Receive Date: 20120322
  Receipt Date: 20120322
  Transmission Date: 20120608
  Serious: No
  Sender: FDA-Public Use
  Company Number: None

PATIENT

DRUGS (2)
  1. SYNTHROID [Suspect]
     Dosage: TABLET 100MCG ORAL 1 TABLET DAILY
     Route: 048
  2. LEVOTHYROXINE SODIUM [Suspect]
     Dosage: TABLET ORAL 100MCG
     Route: 048

REACTIONS (2)
  - MEDICATION ERROR [None]
  - INTERCEPTED DRUG DISPENSING ERROR [None]
